FAERS Safety Report 9057738 (Version 1)
Quarter: 2013Q1

REPORT INFORMATION
  Report Type: Spontaneous
  Country: DK (occurrence: None)
  Receive Date: 20130117
  Receipt Date: 20130117
  Transmission Date: 20140127
  Serious: Yes (Other)
  Sender: FDA-Public Use
  Company Number: 2013MA000408

PATIENT
  Sex: Male

DRUGS (5)
  1. BUTALBITAL, ASPIRIN AND CAFFEINE TABLETS USP, 50 MG/325 MG/40 MG (PUREPAC) (BUTALBITAL W/ASPIRIN,CAFFEINE) [Suspect]
     Indication: PRODUCT USED FOR UNKNOWN INDICATION
  2. REOPRO [Suspect]
     Indication: PERCUTANEOUS CORONARY INTERVENTION
     Route: 042
  3. REOPRO [Suspect]
     Indication: PERCUTANEOUS CORONARY INTERVENTION
     Route: 042
  4. CLOPIDOGREL (CLOPIDOGREL) [Suspect]
     Indication: PRODUCT USED FOR UNKNOWN INDICATION
  5. HEPARIN (HEPARIN) [Suspect]
     Indication: PRODUCT USED FOR UNKNOWN INDICATION

REACTIONS (1)
  - Thrombosis in device [None]
